FAERS Safety Report 13785305 (Version 1)
Quarter: 2017Q3

REPORT INFORMATION
  Report Type: Report from Study
  Country: ZA (occurrence: ZA)
  Receive Date: 20170725
  Receipt Date: 20170725
  Transmission Date: 20171127
  Serious: Yes (Hospitalization)
  Sender: FDA-Public Use
  Company Number: ZA-EMD SERONO-8161535

PATIENT
  Age: 44 Year
  Sex: Female

DRUGS (1)
  1. REBIF [Suspect]
     Active Substance: INTERFERON BETA-1A
     Indication: MULTIPLE SCLEROSIS
     Route: 058
     Dates: start: 20160520

REACTIONS (7)
  - Wound necrosis [Recovering/Resolving]
  - Drug hypersensitivity [Recovering/Resolving]
  - Subcutaneous abscess [Recovering/Resolving]
  - Influenza like illness [Unknown]
  - Injection site mass [Unknown]
  - Wrong technique in product usage process [Unknown]
  - Injection site pain [Unknown]

NARRATIVE: CASE EVENT DATE: 20170527
